FAERS Safety Report 6452976-9 (Version None)
Quarter: 2009Q4

REPORT INFORMATION
  Report Type: 
  Country: None (occurrence: None)
  Receive Date: 20091124
  Receipt Date: 20091113
  Transmission Date: 20100525
  Serious: Yes (Hospitalization, Other)
  Sender: FDA-Public Use
  Company Number: PHHY2009BE39635

PATIENT
  Sex: Female

DRUGS (3)
  1. AREDIA [Suspect]
     Indication: OSTEOPOROSIS POSTMENOPAUSAL
     Dosage: 90 MG EVERY 6 WEEKS
  2. ZOMETA [Suspect]
     Indication: OSTEOPOROSIS POSTMENOPAUSAL
     Dosage: 4 MG EVERY 6 WEEKS
  3. ACLASTA [Suspect]
     Indication: OSTEOPOROSIS POSTMENOPAUSAL
     Dosage: 5 MG, UNK
     Route: 042

REACTIONS (3)
  - DRUG ADMINISTRATION ERROR [None]
  - SPINAL FRACTURE [None]
  - STRESS FRACTURE [None]
